FAERS Safety Report 25279310 (Version 1)
Quarter: 2025Q2

REPORT INFORMATION
  Report Type: Spontaneous
  Country: MX (occurrence: MX)
  Receive Date: 20250507
  Receipt Date: 20250507
  Transmission Date: 20250717
  Serious: Yes (Hospitalization)
  Sender: BIOMARIN
  Company Number: MX-BIOMARINAP-MX-2022-146470

PATIENT

DRUGS (1)
  1. VIMIZIM [Suspect]
     Active Substance: ELOSULFASE ALFA
     Indication: Mucopolysaccharidosis IV
     Dosage: UNK, QW
     Route: 042
     Dates: start: 20210216

REACTIONS (5)
  - Talipes [Not Recovered/Not Resolved]
  - Fatigue [Not Recovered/Not Resolved]
  - Bone deformity [Not Recovered/Not Resolved]
  - Breast disorder [Not Recovered/Not Resolved]
  - Mass [Not Recovered/Not Resolved]

NARRATIVE: CASE EVENT DATE: 20210301
